FAERS Safety Report 8949507 (Version 1)
Quarter: 2012Q4

REPORT INFORMATION
  Report Type: 
  Country: US (occurrence: US)
  Receive Date: 20121206
  Receipt Date: 20121206
  Transmission Date: 20130627
  Serious: Yes (Other)
  Sender: FDA-Public Use
  Company Number: US-PFIZER INC-2012304876

PATIENT
  Sex: Male

DRUGS (2)
  1. DEPO-MEDROL [Suspect]
     Indication: KNEE PAIN
     Dosage: UNK
     Route: 014
  2. LIDOCAINE HCL [Suspect]
     Indication: KNEE PAIN
     Dosage: UNK
     Route: 014

REACTIONS (2)
  - Injection site infection [Unknown]
  - Arthritis infective [Unknown]
